FAERS Safety Report 6218573-5 (Version None)
Quarter: 2009Q2

REPORT INFORMATION
  Report Type: 
  Country: None (occurrence: None)
  Receive Date: 20090608
  Receipt Date: 20090603
  Transmission Date: 20091009
  Serious: Yes (Death, Other)
  Sender: FDA-Public Use
  Company Number: ES-BAYER-200916694GPV

PATIENT
  Age: 52 Year
  Sex: Male
  Weight: 75 kg

DRUGS (13)
  1. ZEVALIN [Suspect]
     Indication: B-CELL LYMPHOMA
     Route: 042
     Dates: start: 20090212, end: 20090212
  2. YTRACIS [Suspect]
     Indication: B-CELL LYMPHOMA
     Route: 042
     Dates: start: 20090212, end: 20090212
  3. RITUXIMAB [Suspect]
     Indication: B-CELL LYMPHOMA
     Route: 042
     Dates: start: 20090212, end: 20090212
  4. RITUXIMAB [Suspect]
     Route: 042
     Dates: start: 20090205, end: 20090205
  5. FLUDARABINE PHOSPHATE [Suspect]
     Indication: B-CELL LYMPHOMA
  6. MELPHALAN [Suspect]
     Indication: B-CELL LYMPHOMA
  7. METHOTREXATE [Suspect]
     Indication: B-CELL LYMPHOMA
  8. AMIODARONE HCL [Concomitant]
     Indication: CARDIAC FAILURE
     Route: 042
     Dates: start: 20090316, end: 20090317
  9. OMEPRAZOL [Concomitant]
     Route: 042
     Dates: start: 20090217, end: 20090317
  10. ACTOCORTINA [Concomitant]
     Route: 042
     Dates: start: 20090314, end: 20090317
  11. CYCLOSPORINE [Concomitant]
     Indication: IMMUNOSUPPRESSANT DRUG THERAPY
     Route: 042
     Dates: start: 20090225, end: 20090317
  12. MEROPENEM [Concomitant]
     Indication: INFECTION
     Route: 042
     Dates: start: 20090304, end: 20090317
  13. TEICOPLANINE [Concomitant]
     Indication: INFECTION
     Route: 042
     Dates: start: 20090304, end: 20090313

REACTIONS (6)
  - BRONCHOPULMONARY ASPERGILLOSIS [None]
  - DIARRHOEA [None]
  - LIVER INJURY [None]
  - MUCOSAL INFLAMMATION [None]
  - MULTI-ORGAN FAILURE [None]
  - NEUTROPENIA [None]
